FAERS Safety Report 19591178 (Version 1)
Quarter: 2021Q3

REPORT INFORMATION
  Report Type: Spontaneous
  Country: IN (occurrence: IN)
  Receive Date: 20210721
  Receipt Date: 20210721
  Transmission Date: 20211014
  Serious: Yes (Other)
  Sender: FDA-Public Use
  Company Number: IN-ANIPHARMA-2021-IN-000145

PATIENT
  Sex: Female

DRUGS (12)
  1. K BIND [Concomitant]
     Active Substance: CALCIUM POLYSTYRENE SULFONATE
     Dosage: ONE SACHET WITH HALF GLASS OF WATER
     Route: 048
  2. ARIMIDEX [Suspect]
     Active Substance: ANASTROZOLE
     Indication: PRODUCT USED FOR UNKNOWN INDICATION
     Route: 048
  3. CONCOR AM [Concomitant]
     Dosage: 1 DF BID
     Route: 048
  4. NO MATCH [Concomitant]
     Active Substance: UNSPECIFIED INGREDIENT
     Dosage: 2 DF BID
     Route: 048
  5. LIVOGEN Z [Concomitant]
     Route: 048
  6. FASLODEX [Suspect]
     Active Substance: FULVESTRANT
     Dosage: 250 MG BID
     Route: 030
     Dates: start: 202010
  7. XGEVA [Concomitant]
     Active Substance: DENOSUMAB
     Dosage: 120 MG MONTH
     Route: 050
  8. PALBACE [Suspect]
     Active Substance: PALBOCICLIB
     Dosage: 100 MG MONTHLY 15 ON 7 OFF
     Route: 048
     Dates: start: 202010
  9. SODANET [Concomitant]
     Dosage: 1 DF BID
     Route: 048
  10. DEPURA [Concomitant]
     Active Substance: CHOLECALCIFEROL
     Dosage: VITAMIN D3 60000 IU ONCE A WEEK
     Route: 048
  11. SELBO [Concomitant]
     Dosage: 1 DF TID
     Route: 048
  12. RANTAC [Concomitant]
     Active Substance: RANITIDINE HYDROCHLORIDE
     Dosage: 1 DF BID
     Route: 048

REACTIONS (2)
  - Metastases to bone [Unknown]
  - Toxicity to various agents [Unknown]

NARRATIVE: CASE EVENT DATE: 202010
